FAERS Safety Report 25752608 (Version 2)
Quarter: 2025Q4

REPORT INFORMATION
  Report Type: Spontaneous
  Country: A1 (occurrence: US)
  Receive Date: 20250902
  Receipt Date: 20251022
  Transmission Date: 20260118
  Serious: No
  Sender: INTERNATIONAL MEDICATION SYSTEM
  Company Number: US-International Medication Systems, Limited-2183682

PATIENT

DRUGS (1)
  1. NALOXONE HYDROCHLORIDE [Suspect]
     Active Substance: NALOXONE HYDROCHLORIDE
     Indication: Overdose

REACTIONS (1)
  - No adverse event [Recovered/Resolved]
